FAERS Safety Report 10574311 (Version 1)
Quarter: 2014Q4

REPORT INFORMATION
  Report Type: Spontaneous
  Country: IT (occurrence: IT)
  Receive Date: 20141110
  Receipt Date: 20141110
  Transmission Date: 20150529
  Serious: Yes (Hospitalization)
  Sender: FDA-Public Use
  Company Number: IT-BAYER-2014-166170

PATIENT
  Age: 30 Year
  Sex: Female

DRUGS (7)
  1. DICLOFENAC [Suspect]
     Active Substance: DICLOFENAC
     Dosage: 450 MG, ONCE
     Route: 048
     Dates: start: 20141008, end: 20141008
  2. METRONIDAZOLE. [Suspect]
     Active Substance: METRONIDAZOLE
     Dosage: 2000 MG, ONCE
     Route: 048
     Dates: start: 20141008, end: 20141008
  3. DORFLEX [Suspect]
     Active Substance: CAFFEINE\DIPYRONE\ORPHENADRINE
     Dosage: 9 DF, ONCE
     Route: 048
     Dates: start: 20141008, end: 20141008
  4. PARACETAMOL [Suspect]
     Active Substance: ACETAMINOPHEN
     Dosage: 1500 MG, ONCE
     Route: 048
     Dates: start: 20141008, end: 20141008
  5. LOPERAMIDE [Suspect]
     Active Substance: LOPERAMIDE
     Dosage: 4 MG, ONCE
     Route: 048
     Dates: start: 20141008, end: 20141008
  6. ACETYLSALICYLIC ACID (} 100 MG) [Suspect]
     Active Substance: ASPIRIN
     Dosage: 1500 MG, ONCE
     Route: 048
     Dates: start: 20141008, end: 20141008
  7. LORATADINE. [Suspect]
     Active Substance: LORATADINE
     Dosage: 70 MG, ONCE
     Route: 048
     Dates: start: 20141008, end: 20141008

REACTIONS (2)
  - Abdominal pain upper [Recovering/Resolving]
  - Drug abuse [Recovering/Resolving]

NARRATIVE: CASE EVENT DATE: 20141008
